FAERS Safety Report 10230958 (Version 1)
Quarter: 2014Q2

REPORT INFORMATION
  Report Type: Spontaneous
  Country: FR (occurrence: FR)
  Receive Date: 20140611
  Receipt Date: 20140611
  Transmission Date: 20141212
  Serious: Yes (Other)
  Sender: FDA-Public Use
  Company Number: FR-PFIZER INC-2014155558

PATIENT
  Age: 63 Year
  Sex: Male
  Weight: 80 kg

DRUGS (21)
  1. IRINOTECAN HCL [Suspect]
     Indication: COLON CANCER METASTATIC
     Dosage: CYCLE 1
     Route: 042
     Dates: start: 20140304, end: 20140304
  2. IRINOTECAN HCL [Suspect]
     Dosage: CYCLE 2
     Route: 042
     Dates: start: 20140318, end: 20140318
  3. IRINOTECAN HCL [Suspect]
     Dosage: CYCLE 3
     Route: 042
     Dates: start: 20140401, end: 20140401
  4. FLUOROURACILE PFIZER [Suspect]
     Indication: COLON CANCER METASTATIC
     Dosage: CYCLE 1
     Route: 042
     Dates: start: 20140304, end: 20140304
  5. FLUOROURACILE PFIZER [Suspect]
     Dosage: CYCLE 2
     Route: 042
     Dates: start: 20140318, end: 20140318
  6. FLUOROURACILE PFIZER [Suspect]
     Dosage: CYCLE 3
     Route: 042
     Dates: start: 20140401, end: 20140401
  7. ZALTRAP [Suspect]
     Indication: COLON CANCER METASTATIC
     Dosage: 25 MG/ML, CYCLE 1
     Route: 042
     Dates: start: 20140304, end: 20140304
  8. ZALTRAP [Suspect]
     Dosage: CYCLE 2
     Route: 042
     Dates: start: 20140318, end: 20140318
  9. ZALTRAP [Suspect]
     Dosage: CYCLE 3
     Route: 042
     Dates: start: 20140401, end: 20140401
  10. DIAMICRON [Concomitant]
     Dosage: 60 MG, 2X/DAY
     Dates: start: 20140403
  11. FUROSEMIDE [Concomitant]
     Dosage: 40 MG, 1X/DAY
     Route: 048
     Dates: start: 20140403
  12. ACTISKENAN [Concomitant]
     Dosage: 10 MG, AS NEEDED
     Route: 048
     Dates: start: 20140403
  13. SKENAN [Concomitant]
     Dosage: 30 MG, 2X/DAY
     Route: 048
     Dates: start: 20140403
  14. TAHOR [Concomitant]
     Dosage: 20 MG, 1X/DAY
     Route: 048
     Dates: start: 20140403
  15. VICTOZA [Concomitant]
     Dosage: 6 MG/ML, 1X/DAY
     Route: 058
     Dates: start: 20140403
  16. NATISPRAY [Concomitant]
     Dosage: 0.15 MG, 2X/DAY
     Route: 055
     Dates: start: 20140403
  17. CARDENSIEL [Concomitant]
     Dosage: 10 MG, 1X/DAY
     Route: 048
     Dates: start: 20140403
  18. GLUCOPHAGE [Concomitant]
     Dosage: 1000 MG, 2X/DAY
     Route: 048
     Dates: end: 20140403
  19. KARDEGIC [Concomitant]
     Dosage: 75 MG, 1X/DAY
     Route: 048
     Dates: start: 20140403
  20. TRIATEC [Concomitant]
     Dosage: 10 MG, 1X/DAY
     Route: 048
     Dates: start: 20140403
  21. FOLINIC ACID [Concomitant]
     Indication: COLON CANCER METASTATIC
     Dosage: UNK
     Dates: start: 20140401, end: 20140401

REACTIONS (1)
  - Cardiac failure [Not Recovered/Not Resolved]
